FAERS Safety Report 20536067 (Version 1)
Quarter: 2022Q1

REPORT INFORMATION
  Report Type: Spontaneous
  Country: IL (occurrence: IL)
  Receive Date: 20220302
  Receipt Date: 20220302
  Transmission Date: 20220424
  Serious: Yes (Hospitalization, Other)
  Sender: FDA-Public Use
  Company Number: IL-AMGEN-ISRSP2022032647

PATIENT
  Age: 23 Year
  Sex: Female

DRUGS (1)
  1. XGEVA [Suspect]
     Active Substance: DENOSUMAB
     Indication: Bone giant cell tumour
     Dosage: 125 MILLIGRAM, EVERY 2-3 MONTHS
     Route: 065

REACTIONS (6)
  - Postoperative wound infection [Recovered/Resolved]
  - Fall [Unknown]
  - Bone giant cell tumour [Recovering/Resolving]
  - Therapeutic product effect decreased [Unknown]
  - Treatment noncompliance [Unknown]
  - Off label use [Unknown]
